FAERS Safety Report 22652213 (Version 1)
Quarter: 2023Q2

REPORT INFORMATION
  Report Type: Report from Study
  Country: NL (occurrence: NL)
  Receive Date: 20230628
  Receipt Date: 20230628
  Transmission Date: 20230722
  Serious: Yes (Other)
  Sender: FDA-Public Use
  Company Number: NL-VER-202300060

PATIENT
  Sex: Male

DRUGS (1)
  1. TRIPTORELIN PAMOATE [Suspect]
     Active Substance: TRIPTORELIN PAMOATE
     Indication: Prostate cancer
     Dosage: BATCH NUMBER WAS REPORTED AS U18172, W07119 AND W19638 AND EXPIRY DATE WAS NOT REPORTED.
     Route: 030
     Dates: start: 20220131

REACTIONS (1)
  - Terminal state [Unknown]
